FAERS Safety Report 12449939 (Version 2)
Quarter: 2016Q3

REPORT INFORMATION
  Report Type: Spontaneous
  Country: US (occurrence: US)
  Receive Date: 20160609
  Receipt Date: 20160711
  Transmission Date: 20161109
  Serious: No
  Sender: FDA-Public Use
  Company Number: US-JNJFOC-20160600961

PATIENT
  Sex: Male

DRUGS (14)
  1. RISPERDAL [Suspect]
     Active Substance: RISPERIDONE
     Indication: SCHIZOPHRENIA
     Dosage: VARYING DOSES OF 1 MG TO 2 MG
     Route: 048
     Dates: start: 200111, end: 200210
  2. INVEGA [Suspect]
     Active Substance: PALIPERIDONE
     Indication: BIPOLAR DISORDER
     Route: 048
     Dates: start: 2010, end: 2012
  3. INVEGA [Suspect]
     Active Substance: PALIPERIDONE
     Indication: SCHIZOPHRENIA
     Route: 048
     Dates: start: 2010, end: 2012
  4. RISPERDAL [Suspect]
     Active Substance: RISPERIDONE
     Indication: CRANIOCEREBRAL INJURY
     Dosage: VARYING DOSES OF 1 MG TO 2 MG
     Route: 048
     Dates: start: 2010, end: 2011
  5. RISPERDAL [Suspect]
     Active Substance: RISPERIDONE
     Indication: BIPOLAR DISORDER
     Dosage: VARYING DOSES OF 1 MG TO 2 MG
     Route: 048
     Dates: start: 2010, end: 2011
  6. INVEGA SUSTENNA [Suspect]
     Active Substance: PALIPERIDONE PALMITATE
     Indication: SCHIZOPHRENIA
     Route: 030
     Dates: start: 201306, end: 201410
  7. RISPERDAL [Suspect]
     Active Substance: RISPERIDONE
     Indication: BIPOLAR DISORDER
     Dosage: VARYING DOSES OF 1 MG TO 2 MG
     Route: 048
     Dates: start: 200111, end: 200210
  8. INVEGA SUSTENNA [Suspect]
     Active Substance: PALIPERIDONE PALMITATE
     Indication: SCHIZOPHRENIA
     Route: 030
     Dates: start: 2010, end: 2012
  9. RISPERDAL [Suspect]
     Active Substance: RISPERIDONE
     Indication: CRANIOCEREBRAL INJURY
     Dosage: VARYING DOSES OF 1 MG TO 2 MG
     Route: 048
     Dates: start: 200111, end: 200210
  10. INVEGA SUSTENNA [Suspect]
     Active Substance: PALIPERIDONE PALMITATE
     Indication: BIPOLAR DISORDER
     Route: 030
     Dates: start: 201306, end: 201410
  11. RISPERDAL [Suspect]
     Active Substance: RISPERIDONE
     Indication: SCHIZOPHRENIA
     Dosage: VARYING DOSES OF 1 MG TO 2 MG
     Route: 048
     Dates: start: 2010, end: 2011
  12. INVEGA [Suspect]
     Active Substance: PALIPERIDONE
     Indication: BIPOLAR DISORDER
     Route: 048
     Dates: start: 201306, end: 201410
  13. INVEGA [Suspect]
     Active Substance: PALIPERIDONE
     Indication: SCHIZOPHRENIA
     Route: 048
     Dates: start: 201306, end: 201410
  14. INVEGA SUSTENNA [Suspect]
     Active Substance: PALIPERIDONE PALMITATE
     Indication: BIPOLAR DISORDER
     Route: 030
     Dates: start: 2010, end: 2012

REACTIONS (4)
  - Extrapyramidal disorder [Unknown]
  - Gynaecomastia [Unknown]
  - Emotional distress [Unknown]
  - Weight increased [Unknown]

NARRATIVE: CASE EVENT DATE: 2002
